FAERS Safety Report 9006676 (Version 1)
Quarter: 2013Q1

REPORT INFORMATION
  Report Type: Spontaneous
  Country: US (occurrence: US)
  Receive Date: 20130110
  Receipt Date: 20130110
  Transmission Date: 20140127
  Serious: Yes (Death)
  Sender: FDA-Public Use
  Company Number: US-PFIZER INC-2013007060

PATIENT
  Age: 44 Year
  Sex: Male

DRUGS (5)
  1. MORPHINE SULFATE [Suspect]
     Dosage: UNK
  2. OXYCODONE HYDROCHLORIDE [Suspect]
     Dosage: UNK
  3. DICYCLOMINE [Suspect]
     Dosage: UNK
  4. CITALOPRAM [Suspect]
     Dosage: UNK
  5. TRAZODONE [Suspect]
     Dosage: UNK

REACTIONS (3)
  - Drug abuse [Fatal]
  - Cardiac arrest [Fatal]
  - Respiratory arrest [Fatal]
